FAERS Safety Report 7920574-3 (Version None)
Quarter: 2011Q4

REPORT INFORMATION
  Report Type: 
  Country: None (occurrence: None)
  Receive Date: 20111117
  Receipt Date: 20111114
  Transmission Date: 20120403
  Serious: Yes (Death)
  Sender: FDA-Public Use
  Company Number: PHHY2011KR100121

PATIENT
  Sex: Male
  Weight: 60 kg

DRUGS (1)
  1. EXELON [Suspect]
     Indication: DEMENTIA ALZHEIMER'S TYPE
     Dosage: 4.6 MG, DAILY (PATCH 5)
     Route: 062
     Dates: start: 20101019

REACTIONS (1)
  - PNEUMONIA [None]
